FAERS Safety Report 5102297-1 (Version None)
Quarter: 2006Q3

REPORT INFORMATION
  Report Type: 
  Country: None (occurrence: None)
  Receive Date: 20060908
  Receipt Date: 20060821
  Transmission Date: 20061208
  Serious: Yes (Other)
  Sender: FDA-Public Use
  Company Number: US200608005026

PATIENT
  Age: 16 Year
  Sex: Female

DRUGS (3)
  1. CYMBALTA [Suspect]
     Dosage: SEE IMAGE
     Dates: start: 20060716, end: 20060809
  2. CYMBALTA [Suspect]
     Dosage: SEE IMAGE
     Dates: start: 20060810
  3. LAMICTAL [Concomitant]

REACTIONS (4)
  - ARRHYTHMIA [None]
  - LOSS OF CONSCIOUSNESS [None]
  - SUPRAVENTRICULAR TACHYCARDIA [None]
  - TACHYCARDIA [None]
